FAERS Safety Report 23095103 (Version 1)
Quarter: 2023Q4

REPORT INFORMATION
  Report Type: Spontaneous
  Country: US (occurrence: US)
  Receive Date: 20231023
  Receipt Date: 20231023
  Transmission Date: 20240110
  Serious: Yes (Other)
  Sender: FDA-Public Use
  Company Number: US-BAYER-2023A141991

PATIENT
  Age: 70 Year
  Sex: Female

DRUGS (1)
  1. CLIMARA PRO [Suspect]
     Active Substance: ESTRADIOL\LEVONORGESTREL
     Indication: Night sweats
     Dosage: UNK
     Route: 062
     Dates: start: 202307

REACTIONS (4)
  - Postmenopausal haemorrhage [None]
  - Waist circumference increased [None]
  - Off label use [None]
  - Wrong technique in device usage process [None]

NARRATIVE: CASE EVENT DATE: 20231001
